FAERS Safety Report 10500951 (Version 1)
Quarter: 2014Q4

REPORT INFORMATION
  Report Type: Spontaneous
  Country: US (occurrence: US)
  Receive Date: 20141007
  Receipt Date: 20141007
  Transmission Date: 20150528
  Serious: No
  Sender: FDA-Public Use
  Company Number: US-009507513-1409USA010102

PATIENT

DRUGS (2)
  1. ASPARTAME [Suspect]
     Active Substance: ASPARTAME
     Indication: MIGRAINE
  2. RIZATRIPTAN BENZOATE ODT:: NDA 20-865 [Suspect]
     Active Substance: RIZATRIPTAN BENZOATE
     Indication: MIGRAINE
     Dosage: UNK
     Route: 048

REACTIONS (1)
  - Migraine [Unknown]
